FAERS Safety Report 10969668 (Version 2)
Quarter: 2015Q2

REPORT INFORMATION
  Report Type: Spontaneous
  Country: US (occurrence: US)
  Receive Date: 20150331
  Receipt Date: 20150414
  Transmission Date: 20150821
  Serious: No
  Sender: FDA-Public Use
  Company Number: US-009507513-1503USA013934

PATIENT
  Age: 33 Year
  Sex: Female

DRUGS (9)
  1. INDOMETHACIN. [Concomitant]
     Active Substance: INDOMETHACIN
  2. NUVARING [Concomitant]
     Active Substance: ETHINYL ESTRADIOL\ETONOGESTREL
     Route: 067
  3. OMEPRAZOLE. [Concomitant]
     Active Substance: OMEPRAZOLE
  4. AMLODIPINE [Concomitant]
     Active Substance: AMLODIPINE BESYLATE
  5. INTRON A [Suspect]
     Active Substance: INTERFERON ALFA-2B
     Indication: MALIGNANT MELANOMA
     Dosage: DOSE/FREQUENCY: 18 MILLION IU
     Route: 042
  6. INTRON A [Suspect]
     Active Substance: INTERFERON ALFA-2B
     Dosage: DOSE/FREQUENCY: 18 MILLION IU
     Route: 042
     Dates: start: 20150310
  7. INTRON A [Suspect]
     Active Substance: INTERFERON ALFA-2B
     Dosage: DOSE/FREQUENCY: 18 MILLION IU
     Route: 042
     Dates: start: 20150304, end: 20150304
  8. CLONAZEPAM. [Concomitant]
     Active Substance: CLONAZEPAM
  9. PERCOCET [Concomitant]
     Active Substance: ACETAMINOPHEN\OXYCODONE HYDROCHLORIDE

REACTIONS (3)
  - Dizziness [Recovered/Resolved]
  - Myalgia [Recovered/Resolved]
  - Pyrexia [Recovered/Resolved]

NARRATIVE: CASE EVENT DATE: 20150304
